FAERS Safety Report 5406145-1 (Version None)
Quarter: 2007Q3

REPORT INFORMATION
  Report Type: 
  Country: None (occurrence: None)
  Receive Date: 20070801
  Receipt Date: 20070404
  Transmission Date: 20080115
  Serious: Yes (Other)
  Sender: FDA-Public Use
  Company Number: 6029343

PATIENT
  Age: 28 Year
  Sex: Female

DRUGS (4)
  1. PAROXETINE [Suspect]
     Indication: DRUG USE FOR UNKNOWN INDICATION
     Dates: start: 19970902, end: 20010101
  2. IBUPROFEN [Suspect]
     Indication: DRUG USE FOR UNKNOWN INDICATION
     Dosage: ORAL
     Route: 048
  3. SERTRALINE [Concomitant]
  4. SULPIRIDE (SULPIRIDE) [Concomitant]

REACTIONS (21)
  - ALCOHOL USE [None]
  - ANXIETY [None]
  - ASTHENIA [None]
  - DRUG ABUSER [None]
  - DRUG WITHDRAWAL SYNDROME [None]
  - DRY MOUTH [None]
  - EMOTIONAL DISTRESS [None]
  - FEELING ABNORMAL [None]
  - HYPERHIDROSIS [None]
  - HYPOAESTHESIA [None]
  - INSOMNIA [None]
  - ORAL INTAKE REDUCED [None]
  - OVERDOSE [None]
  - PARANOIA [None]
  - PARTNER STRESS [None]
  - PRURITUS [None]
  - REBOUND EFFECT [None]
  - SELF-INJURIOUS IDEATION [None]
  - SUICIDAL IDEATION [None]
  - TEARFULNESS [None]
  - TREATMENT NONCOMPLIANCE [None]
